FAERS Safety Report 7662046-X (Version None)
Quarter: 2011Q3

REPORT INFORMATION
  Report Type: 
  Country: None (occurrence: None)
  Receive Date: 20110805
  Receipt Date: 20101209
  Transmission Date: 20111222
  Serious: No
  Sender: FDA-Public Use
  Company Number: US-ABBOTT-10P-163-0690374-00

PATIENT
  Sex: Male
  Weight: 80.812 kg

DRUGS (9)
  1. NIASPAN [Suspect]
     Indication: BLOOD CHOLESTEROL INCREASED
     Dates: start: 20101205, end: 20101210
  2. HYDROCHLOROTHIAZIDE [Concomitant]
     Indication: OEDEMA
  3. CLARINEX [Concomitant]
     Indication: HYPERSENSITIVITY
  4. NIASPAN [Suspect]
     Indication: HIGH DENSITY LIPOPROTEIN DECREASED
     Dates: start: 20101118
  5. METFORMIN HCL [Concomitant]
     Indication: METABOLIC SYNDROME
  6. BIATA INJECTION [Concomitant]
     Indication: METABOLIC SYNDROME
  7. AMLODIPINE [Concomitant]
     Indication: HYPERTENSION
  8. LOSARTAN POTASSIUM [Concomitant]
     Indication: HYPERTENSION
  9. NASONEX [Concomitant]
     Indication: HYPERSENSITIVITY

REACTIONS (5)
  - FLUSHING [None]
  - FAECES PALE [None]
  - DIARRHOEA [None]
  - FAECES DISCOLOURED [None]
  - PRURITUS [None]
